FAERS Safety Report 8938362 (Version 3)
Quarter: 2017Q4

REPORT INFORMATION
  Report Type: Report from Study
  Country: US (occurrence: US)
  Receive Date: 20121203
  Receipt Date: 20171031
  Transmission Date: 20180321
  Serious: Yes (Hospitalization, Other)
  Sender: FDA-Public Use
  Company Number: PHEH2012US023599

PATIENT
  Age: 33 Year
  Sex: Female

DRUGS (1)
  1. GILENYA [Suspect]
     Active Substance: FINGOLIMOD HYDROCHLORIDE
     Indication: MULTIPLE SCLEROSIS
     Dosage: 0.5 MG, QD
     Route: 048
     Dates: start: 20121128

REACTIONS (3)
  - Atrioventricular block first degree [Unknown]
  - Atrioventricular block second degree [Recovered/Resolved]
  - Electrocardiogram PR prolongation [Unknown]

NARRATIVE: CASE EVENT DATE: 20121128
